FAERS Safety Report 10202453 (Version 2)
Quarter: 2014Q2

REPORT INFORMATION
  Report Type: Spontaneous
  Country: CA (occurrence: CA)
  Receive Date: 20140528
  Receipt Date: 20140620
  Transmission Date: 20141212
  Serious: Yes (Hospitalization, Other)
  Sender: FDA-Public Use
  Company Number: CA-009507513-1405CAN011236

PATIENT
  Age: 70 Year
  Sex: Female

DRUGS (1)
  1. TEMODAL [Suspect]
     Indication: GLIOBLASTOMA MULTIFORME
     Dosage: STRENGTH 5MG, 20MG, 100MG, 250MG, 140MG; 1 CYCLE OF TEMODAR (5 DAYS)
     Route: 048
     Dates: start: 201404, end: 2014

REACTIONS (1)
  - Epilepsy [Not Recovered/Not Resolved]
